FAERS Safety Report 9259240 (Version 2)
Quarter: 2013Q2

REPORT INFORMATION
  Report Type: Report from Study
  Country: DE (occurrence: DE)
  Receive Date: 20130426
  Receipt Date: 20130506
  Transmission Date: 20140414
  Serious: Yes (Life-Threatening)
  Sender: FDA-Public Use
  Company Number: DE-B.I. PHARMACEUTICALS,INC./RIDGEFIELD-2013-DE-01190DE

PATIENT
  Age: 55 Year
  Sex: Female
  Weight: 70 kg

DRUGS (9)
  1. AGGRENOX [Suspect]
     Dosage: THERAPEUTIC DOSE
     Route: 048
     Dates: start: 20130419, end: 20130419
  2. RAMIPRIL [Suspect]
     Dosage: THERAPEUTIC DOSE
     Route: 048
     Dates: start: 20130419, end: 20130419
  3. HCT [Suspect]
     Dosage: THERAPEUTIC DOSE
     Route: 048
     Dates: start: 20130419, end: 20130419
  4. AMLODIPIN [Suspect]
     Dosage: THERAPEUTIC DOSE
     Route: 048
     Dates: start: 20130419, end: 20130419
  5. RIVASTIGMIN [Suspect]
     Dosage: THERAPEUTIC DOSE
     Route: 048
     Dates: start: 20130419, end: 20130419
  6. SIMVASTATIN [Suspect]
     Dosage: THERAPEUTIC DOSE
     Route: 048
     Dates: start: 20130419, end: 20130419
  7. BISOPROLOL [Suspect]
     Dosage: THERAPEUTIC DOSE
     Route: 048
     Dates: start: 20130419, end: 20130419
  8. OPIPRAMOL [Suspect]
     Dosage: THERAPEUTIC DOSE
     Route: 048
     Dates: start: 20130419, end: 20130419
  9. NOVALGIN [Suspect]
     Dosage: THERAPEUTIC DOSE
     Route: 048
     Dates: start: 20130419, end: 20130419

REACTIONS (9)
  - Suicide attempt [Unknown]
  - Somnolence [Unknown]
  - Pallor [Unknown]
  - Vomiting [Unknown]
  - Breath odour [Unknown]
  - Tachycardia [Unknown]
  - Muscle contractions involuntary [Unknown]
  - Hyperthermia [Unknown]
  - Pneumonia [Unknown]
